FAERS Safety Report 6153788-6 (Version None)
Quarter: 2009Q2

REPORT INFORMATION
  Report Type: 
  Country: None (occurrence: None)
  Receive Date: 20090414
  Receipt Date: 20071121
  Transmission Date: 20091009
  Serious: Yes (Death, Hospitalization)
  Sender: FDA-Public Use
  Company Number: US-ASTRAZENECA-2006UW21594

PATIENT
  Age: 12061 Day
  Sex: Female
  Weight: 122.9 kg

DRUGS (17)
  1. SEROQUEL [Suspect]
     Indication: POST-TRAUMATIC STRESS DISORDER
     Route: 048
     Dates: start: 19990101, end: 20031201
  2. SEROQUEL [Suspect]
     Indication: DEPRESSION
     Route: 048
     Dates: start: 19990101, end: 20031201
  3. SEROQUEL [Suspect]
     Route: 048
     Dates: start: 19990101, end: 20031201
  4. SEROQUEL [Suspect]
     Dosage: 100 TO 200 MG
     Route: 048
  5. SEROQUEL [Suspect]
     Dosage: 100 TO 200 MG
     Route: 048
  6. SEROQUEL [Suspect]
     Dosage: 100 TO 200 MG
     Route: 048
  7. RISPERDAL [Concomitant]
     Dates: start: 20030401
  8. ZYPREXA [Concomitant]
     Dates: start: 19990101, end: 20030101
  9. ZOLOFT [Concomitant]
  10. VISTARIL [Concomitant]
  11. SINGULAIR [Concomitant]
  12. PROVENTIL [Concomitant]
  13. CLARITIN [Concomitant]
  14. MOTRIN [Concomitant]
  15. PREDNISOLONE [Concomitant]
  16. ZOVIRAX [Concomitant]
  17. CELEBREX [Concomitant]

REACTIONS (11)
  - ASTHMA [None]
  - BULIMIA NERVOSA [None]
  - DRUG ABUSE [None]
  - DRUG DEPENDENCE [None]
  - DYSTHYMIC DISORDER [None]
  - FACIAL PALSY [None]
  - OBESITY [None]
  - OVERDOSE [None]
  - POST-TRAUMATIC STRESS DISORDER [None]
  - TOOTH ABSCESS [None]
  - TYPE 2 DIABETES MELLITUS [None]
